FAERS Safety Report 6055328-9 (Version None)
Quarter: 2009Q1

REPORT INFORMATION
  Report Type: 
  Country: None (occurrence: None)
  Receive Date: 20090128
  Receipt Date: 20090122
  Transmission Date: 20090719
  Serious: Yes (Disabling, Other)
  Sender: FDA-Public Use
  Company Number: US-GILEAD-2008-0019644

PATIENT
  Sex: Male

DRUGS (19)
  1. LETAIRIS [Suspect]
     Indication: PULMONARY ARTERIAL HYPERTENSION
     Route: 048
     Dates: start: 20081217, end: 20081227
  2. LANTUS [Concomitant]
  3. ENALAPRIL MALEATE [Concomitant]
  4. LASIX [Concomitant]
  5. ADVAIR DISKUS 100/50 [Concomitant]
  6. ALBUTEROL SULATE [Concomitant]
  7. SINGULAIR [Concomitant]
  8. ASPIRIN [Concomitant]
  9. ACIPHEX [Concomitant]
  10. LYRICA [Concomitant]
  11. POTASSIUM CHLORIDE [Concomitant]
  12. SIMVASTATIN [Concomitant]
  13. TRICOR [Concomitant]
  14. AMBIEN [Concomitant]
  15. FERROUS SULFATE TAB [Concomitant]
  16. DOC-Q-LACE [Concomitant]
  17. NORCO [Concomitant]
  18. REVATIO [Concomitant]
  19. REVATIO [Concomitant]

REACTIONS (6)
  - DYSPNOEA [None]
  - EPISTAXIS [None]
  - FLUID RETENTION [None]
  - HEADACHE [None]
  - NASAL CONGESTION [None]
  - WEIGHT INCREASED [None]
